FAERS Safety Report 10289088 (Version 1)
Quarter: 2014Q3

REPORT INFORMATION
  Report Type: Spontaneous
  Country: JP (occurrence: JP)
  Receive Date: 20140710
  Receipt Date: 20140710
  Transmission Date: 20150326
  Serious: Yes (Other)
  Sender: FDA-Public Use
  Company Number: JP-MYLANLABS-2014S1015990

PATIENT
  Age: 42 Year
  Sex: Male
  Weight: 61.4 kg

DRUGS (3)
  1. COTRIMOXAZOLE [Suspect]
     Active Substance: SULFAMETHOXAZOLE\TRIMETHOPRIM
     Dosage: 8MG/400MG
     Route: 048
  2. METHYLPREDNISOLONE [Suspect]
     Active Substance: METHYLPREDNISOLONE
     Indication: HEPATITIS ACUTE
     Dosage: 500MG/DAY
     Route: 065
     Dates: start: 201210
  3. PREDNISOLONE. [Suspect]
     Active Substance: PREDNISOLONE
     Indication: HEPATITIS ACUTE
     Dosage: 60MG/DAY
     Route: 065
     Dates: start: 201210

REACTIONS (3)
  - Nocardiosis [Recovered/Resolved]
  - Agranulocytosis [Unknown]
  - Pneumocystis jirovecii pneumonia [Recovered/Resolved]
